FAERS Safety Report 15852255 (Version 2)
Quarter: 2019Q1

REPORT INFORMATION
  Report Type: Report from Study
  Country: IT (occurrence: IT)
  Receive Date: 20190122
  Receipt Date: 20190206
  Transmission Date: 20190417
  Serious: Yes (Death, Hospitalization, Other)
  Sender: FDA-Public Use
  Company Number: IT-AUROBINDO-AUR-APL-2019-001646

PATIENT

DRUGS (7)
  1. AMANTADINE. [Suspect]
     Active Substance: AMANTADINE HYDROCHLORIDE
     Indication: ON AND OFF PHENOMENON
     Dosage: 200 MILLIGRAM, ONCE A DAY
     Route: 065
  2. CARBIDOPA;LEVODOPA [Suspect]
     Active Substance: CARBIDOPA\LEVODOPA
     Dosage: 700 UNK
     Route: 065
  3. CARBIDOPA;LEVODOPA [Suspect]
     Active Substance: CARBIDOPA\LEVODOPA
     Indication: ON AND OFF PHENOMENON
     Dosage: 1500 MILLIGRAM, ONCE A DAY
     Route: 065
     Dates: start: 2012
  4. SERTRALINE [Suspect]
     Active Substance: SERTRALINE HYDROCHLORIDE
     Indication: ON AND OFF PHENOMENON
     Dosage: 50 MILLIGRAM, ONCE A DAY
     Route: 065
  5. AMANTADINE. [Suspect]
     Active Substance: AMANTADINE HYDROCHLORIDE
     Indication: PARKINSON^S DISEASE
  6. PRAMIPEXOLE. [Suspect]
     Active Substance: PRAMIPEXOLE
     Indication: ON AND OFF PHENOMENON
     Dosage: 1.05 MILLIGRAM, ONCE A DAY
     Route: 065
  7. PRAMIPEXOLE. [Suspect]
     Active Substance: PRAMIPEXOLE
     Indication: PARKINSON^S DISEASE

REACTIONS (4)
  - Multiple organ dysfunction syndrome [Fatal]
  - Renal failure [Unknown]
  - Parkinsonism hyperpyrexia syndrome [Fatal]
  - Pneumonia [Unknown]

NARRATIVE: CASE EVENT DATE: 201507
